FAERS Safety Report 16080738 (Version 1)
Quarter: 2019Q1

REPORT INFORMATION
  Report Type: Spontaneous
  Country: GB (occurrence: GB)
  Receive Date: 20190316
  Receipt Date: 20190316
  Transmission Date: 20190418
  Serious: Yes (Other)
  Sender: FDA-Public Use
  Company Number: GB-TEVA-2019-GB-1023582

PATIENT
  Age: 64 Year
  Sex: Female
  Weight: 105.22 kg

DRUGS (2)
  1. CLOPIXOL DEPOT [Concomitant]
     Active Substance: ZUCLOPENTHIXOL
  2. COCODAMOL [Suspect]
     Active Substance: ACETAMINOPHEN\CODEINE PHOSPHATE
     Dosage: 8/500
     Route: 048
     Dates: start: 20181018, end: 20190216

REACTIONS (2)
  - Musculoskeletal stiffness [Not Recovered/Not Resolved]
  - Pain [Not Recovered/Not Resolved]

NARRATIVE: CASE EVENT DATE: 20190208
